FAERS Safety Report 16668447 (Version 1)
Quarter: 2019Q3

REPORT INFORMATION
  Report Type: Spontaneous
  Country: FR (occurrence: FR)
  Receive Date: 20190805
  Receipt Date: 20190805
  Transmission Date: 20191004
  Serious: Yes (Other)
  Sender: FDA-Public Use
  Company Number: FR-009507513-1907FRA016018

PATIENT
  Age: 67 Year
  Sex: Male

DRUGS (9)
  1. LOVENOX [Suspect]
     Active Substance: ENOXAPARIN SODIUM
     Indication: THROMBOSIS PROPHYLAXIS
     Dosage: 4000 INTERNATIONAL UNIT, QD
     Route: 058
     Dates: start: 20190405
  2. RIFADIN [Suspect]
     Active Substance: RIFAMPIN
     Indication: EPIDIDYMITIS
     Dosage: 1200 MILLIGRAM, QD (600 MILLIGRAM, BID) (0-2-0-2)
     Route: 048
     Dates: start: 20190405
  3. SODIUM ALGINATE (+) SODIUM BICARBONATE [Suspect]
     Active Substance: SODIUM ALGINATE\SODIUM BICARBONATE
     Indication: GASTROOESOPHAGEAL REFLUX DISEASE
     Dosage: 1 DOSAGE FORM, PRN, (MAXIMUM 4 A DAY)
     Route: 048
     Dates: start: 20190406
  4. DOLIPRANE [Concomitant]
     Active Substance: ACETAMINOPHEN
     Indication: PAIN
     Dosage: 500 DOSAGE FORM, PRN
     Route: 048
  5. HAVLANE [Concomitant]
     Active Substance: LOPRAZOLAM
     Indication: SLEEP DISORDER
     Dosage: 1 MILLIGRAM, QD
     Route: 048
  6. DESLORATADINE. [Suspect]
     Active Substance: DESLORATADINE
     Indication: RHINITIS
     Dosage: 5 MILLIGRAM
     Route: 048
     Dates: start: 20190426, end: 20190510
  7. LANSOPRAZOLE. [Suspect]
     Active Substance: LANSOPRAZOLE
     Indication: PROPHYLAXIS AGAINST GASTROINTESTINAL ULCER
     Dosage: 15 MILLIGRAM, QD (0-1-0)
     Route: 048
     Dates: start: 20190410
  8. LEVOFLOXACIN. [Suspect]
     Active Substance: LEVOFLOXACIN
     Indication: EPIDIDYMITIS
     Dosage: 1000 MILLIGRAM, QD
     Route: 048
     Dates: start: 20190405, end: 20190503
  9. TRAMADOL HYDROCHLORIDE. [Suspect]
     Active Substance: TRAMADOL HYDROCHLORIDE
     Indication: PAIN
     Dosage: 100 MILLIGRAM, BID
     Route: 048
     Dates: start: 20190410

REACTIONS (1)
  - Rotator cuff syndrome [Recovering/Resolving]

NARRATIVE: CASE EVENT DATE: 20190503
